FAERS Safety Report 5710416-9 (Version None)
Quarter: 2008Q2

REPORT INFORMATION
  Report Type: 
  Country: None (occurrence: None)
  Receive Date: 20080418
  Receipt Date: 20080408
  Transmission Date: 20081010
  Serious: Yes (Hospitalization)
  Sender: FDA-Public Use
  Company Number: NL-PFIZER INC-2008032212

PATIENT
  Sex: Female
  Weight: 80 kg

DRUGS (7)
  1. LYRICA [Suspect]
     Indication: PAIN
     Route: 048
     Dates: start: 20080101, end: 20080201
  2. ATENOLOL AND CHLORTHALIDONE [Concomitant]
     Route: 048
  3. FOSAVANCE [Concomitant]
     Route: 048
  4. GLIMEPIRIDE [Concomitant]
     Route: 048
  5. NEXIUM [Concomitant]
     Route: 048
  6. SIMVASTATIN [Concomitant]
     Route: 048
  7. METOCLOPRAMIDE [Concomitant]
     Route: 048

REACTIONS (1)
  - PARKINSONISM [None]
